FAERS Safety Report 7167850-2 (Version None)
Quarter: 2010Q4

REPORT INFORMATION
  Report Type: 
  Country: None (occurrence: None)
  Receive Date: 20101216
  Receipt Date: 20101201
  Transmission Date: 20110411
  Serious: Yes (Other)
  Sender: FDA-Public Use
  Company Number: IN-BAUSCH-2010BL006841

PATIENT
  Age: 2 Year
  Sex: Male
  Weight: 13 kg

DRUGS (9)
  1. PHENYLEPHRINE HCL [Suspect]
     Indication: POSTOPERATIVE CARE
     Route: 047
  2. PHENYLEPHRINE HCL [Suspect]
     Route: 047
  3. GLYCOPYRROLATE [Concomitant]
     Route: 042
  4. TRICLOFOS [Concomitant]
     Route: 042
  5. NITROUS OXIDE ^BRITISH OXYGEN^ [Concomitant]
     Route: 049
  6. OXYGEN [Concomitant]
     Route: 049
  7. SEVOFLURANE [Concomitant]
     Route: 049
  8. FENTANYL CITRATE [Concomitant]
     Route: 042
  9. ATRACURIUM BESYLATE [Concomitant]
     Route: 042

REACTIONS (1)
  - PULMONARY OEDEMA [None]
